FAERS Safety Report 6699378-8 (Version None)
Quarter: 2010Q2

REPORT INFORMATION
  Report Type: 
  Country: None (occurrence: None)
  Receive Date: 20100426
  Receipt Date: 20100412
  Transmission Date: 20101027
  Serious: Yes (Hospitalization)
  Sender: FDA-Public Use
  Company Number: 2009-0780

PATIENT
  Age: 10 Year
  Sex: Male
  Weight: 27 kg

DRUGS (3)
  1. NUTROPIN AQ [Suspect]
     Indication: GROWTH HORMONE DEFICIENCY
     Dosage: 24 UNITS (24 UNITS, 1 IN 1 D), SUBCUTANEOUS
     Route: 058
     Dates: start: 20080509
  2. INCRELEX [Suspect]
     Indication: INSULIN-LIKE GROWTH FACTOR
     Dosage: 14 UNITS (14 UNITS, 1 IN 1 D) SUBCUTANEOUS
     Route: 058
     Dates: start: 20080509
  3. DAPSONE [Concomitant]

REACTIONS (9)
  - ABDOMINAL PAIN [None]
  - ASTHENIA [None]
  - BLOOD ALKALINE PHOSPHATASE INCREASED [None]
  - BLOOD GLUCOSE INCREASED [None]
  - BLOOD SODIUM INCREASED [None]
  - GINGIVAL BLEEDING [None]
  - HAEMATOCRIT DECREASED [None]
  - HAEMOGLOBIN DECREASED [None]
  - THROMBOCYTOPENIA [None]
